FAERS Safety Report 23668337 (Version 1)
Quarter: 2024Q1

REPORT INFORMATION
  Report Type: Spontaneous
  Country: US (occurrence: US)
  Receive Date: 20240325
  Receipt Date: 20240325
  Transmission Date: 20240409
  Serious: Yes (Hospitalization, Other)
  Sender: FDA-Public Use
  Company Number: US-BRISTOL-MYERS SQUIBB COMPANY-2024-043043

PATIENT
  Age: 82 Year
  Sex: Female
  Weight: 56.25 kg

DRUGS (1)
  1. REVLIMID [Suspect]
     Active Substance: LENALIDOMIDE
     Indication: Plasma cell myeloma
     Dosage: FREQUENCY: 10 MG CAPSULE DAILY FOR 1 WEEK ON THEN 1 WEEK OFF
     Route: 048

REACTIONS (3)
  - Intestinal obstruction [Unknown]
  - Diarrhoea [Recovering/Resolving]
  - Off label use [Unknown]
